FAERS Safety Report 18713178 (Version 2)
Quarter: 2022Q2

REPORT INFORMATION
  Report Type: Spontaneous
  Country: US (occurrence: US)
  Receive Date: 20210107
  Receipt Date: 20220415
  Transmission Date: 20220721
  Serious: No
  Sender: FDA-Public Use
  Company Number: US-PFIZER INC-2021006252

PATIENT
  Age: 58 Year
  Sex: Female

DRUGS (11)
  1. XELJANZ XR [Suspect]
     Active Substance: TOFACITINIB CITRATE
     Indication: Rheumatoid arthritis
     Dosage: 11 MG, DAILY
     Route: 048
     Dates: start: 202010
  2. XELJANZ XR [Suspect]
     Active Substance: TOFACITINIB CITRATE
     Indication: Psoriatic arthropathy
  3. DULOXETINE [Concomitant]
     Active Substance: DULOXETINE
     Dosage: UNK
  4. ALOE VERA LEAF [Concomitant]
     Active Substance: ALOE VERA LEAF
     Dosage: UNK
  5. VITAMIN B12 [Concomitant]
     Active Substance: CYANOCOBALAMIN
     Dosage: UNK
  6. LYSINE [Concomitant]
     Active Substance: LYSINE
     Dosage: UNK
  7. SPIRULINA SPP. [Concomitant]
     Dosage: UNK
  8. HERBALS\TURMERIC [Concomitant]
     Active Substance: HERBALS\TURMERIC
     Dosage: UNK
  9. VITAMIN B COMPLEX [Concomitant]
     Active Substance: CYANOCOBALAMIN\DEXPANTHENOL\NIACINAMIDE\PYRIDOXINE HYDROCHLORIDE\RIBOFLAVIN 5^-PHOSPHATE SODIUM\THIA
     Dosage: UNK
  10. ZINC [Concomitant]
     Active Substance: ZINC
     Dosage: UNK
  11. VITAMINS [Concomitant]
     Active Substance: VITAMINS

REACTIONS (2)
  - Product dose omission issue [Unknown]
  - SARS-CoV-2 test positive [Unknown]

NARRATIVE: CASE EVENT DATE: 20201201
